FAERS Safety Report 23237284 (Version 1)
Quarter: 2023Q4

REPORT INFORMATION
  Report Type: Report from Study
  Country: AU (occurrence: AU)
  Receive Date: 20231128
  Receipt Date: 20231128
  Transmission Date: 20240110
  Serious: Yes (Hospitalization, Other)
  Sender: FDA-Public Use
  Company Number: AU-BIOGEN-2023BI01220775

PATIENT
  Age: 16 Year
  Sex: Female

DRUGS (6)
  1. TYSABRI [Suspect]
     Active Substance: NATALIZUMAB
     Indication: Relapsing-remitting multiple sclerosis
     Dosage: 300 MG/15 ML
     Route: 050
     Dates: start: 20220729
  2. PROGESTERONE [Concomitant]
     Active Substance: PROGESTERONE
     Indication: Product used for unknown indication
     Route: 050
  3. NAPROSYN [Concomitant]
     Active Substance: NAPROXEN
     Indication: Dysmenorrhoea
     Route: 050
  4. IBUPROFEN [Concomitant]
     Active Substance: IBUPROFEN
     Indication: Pain
     Route: 050
  5. ESCITALOPRAM [Concomitant]
     Active Substance: ESCITALOPRAM OXALATE
     Indication: Antidepressant therapy
     Route: 050
  6. VITAMIN D [Concomitant]
     Active Substance: VITAMIN D NOS
     Indication: Product used for unknown indication
     Route: 050

REACTIONS (13)
  - Tonsillitis [Recovered/Resolved]
  - Procedural haemorrhage [Unknown]
  - Suicidal ideation [Unknown]
  - Oesophageal stenosis [Unknown]
  - Multiple sclerosis relapse [Not Recovered/Not Resolved]
  - Infusion site extravasation [Unknown]
  - Attention deficit hyperactivity disorder [Unknown]
  - Allergy to animal [Unknown]
  - Eye movement disorder [Recovered/Resolved]
  - Off label use [Not Recovered/Not Resolved]
  - Post procedural discomfort [Unknown]
  - Pain [Unknown]
  - Urticaria [Unknown]

NARRATIVE: CASE EVENT DATE: 20220729
